FAERS Safety Report 5691199-8 (Version None)
Quarter: 2008Q2

REPORT INFORMATION
  Report Type: 
  Country: None (occurrence: None)
  Receive Date: 20080401
  Receipt Date: 20080401
  Transmission Date: 20081010
  Serious: Yes (Death)
  Sender: FDA-Public Use
  Company Number: None

PATIENT
  Sex: Male

DRUGS (1)
  1. JOHNSON + JOHNSON (CORDIS) CYPHER STENT CARDIS [Suspect]

REACTIONS (1)
  - SUDDEN DEATH [None]
